FAERS Safety Report 19501915 (Version 3)
Quarter: 2021Q3

REPORT INFORMATION
  Report Type: Spontaneous
  Country: US (occurrence: US)
  Receive Date: 20210707
  Receipt Date: 20210902
  Transmission Date: 20211014
  Serious: Yes (Hospitalization, Other)
  Sender: FDA-Public Use
  Company Number: US-PFIZER INC-2019362960

PATIENT
  Age: 74 Year
  Sex: Female
  Weight: 89.1 kg

DRUGS (2)
  1. IBRANCE [Suspect]
     Active Substance: PALBOCICLIB
     Indication: BREAST CANCER FEMALE
     Dosage: 100 MG, CYCLIC (DAILY FOR 21 DAYS, THEN OFF FOR 14 DAYS)
     Route: 048
     Dates: start: 202011, end: 202104
  2. IBRANCE [Suspect]
     Active Substance: PALBOCICLIB
     Dosage: 100 MG, CYCLIC (DAILY 1?21 OF 28 DAYS CYCLE)
     Route: 048
     Dates: start: 20210617, end: 20210714

REACTIONS (3)
  - Febrile neutropenia [Recovered/Resolved]
  - Neoplasm progression [Unknown]
  - COVID-19 [Recovered/Resolved]

NARRATIVE: CASE EVENT DATE: 20210329
